FAERS Safety Report 5086818-3 (Version None)
Quarter: 2006Q3

REPORT INFORMATION
  Report Type: 
  Country: None (occurrence: None)
  Receive Date: 20060823
  Receipt Date: 20060807
  Transmission Date: 20061208
  Serious: Yes (Hospitalization, Other)
  Sender: FDA-Public Use
  Company Number: JP-SANOFI-SYNTHELABO-A01200606588

PATIENT
  Age: 74 Year
  Sex: Female

DRUGS (6)
  1. JUVELA N [Concomitant]
     Indication: DRUG USE FOR UNKNOWN INDICATION
     Dosage: 200 MG
     Route: 042
     Dates: start: 20060130
  2. BEZATOL SR [Concomitant]
     Indication: DRUG USE FOR UNKNOWN INDICATION
     Dosage: 200 MG
     Route: 048
     Dates: start: 20051219
  3. MAGNESIUM CHLORIDE [Concomitant]
     Indication: DRUG USE FOR UNKNOWN INDICATION
     Dosage: 0.4 G
     Route: 048
     Dates: start: 20030821
  4. BIOSMIN [Concomitant]
     Indication: DRUG USE FOR UNKNOWN INDICATION
     Dosage: 2 MG
     Route: 048
     Dates: start: 20030821
  5. LENDORMIN D [Suspect]
     Indication: DRUG USE FOR UNKNOWN INDICATION
     Dosage: 0.25 MG
     Route: 048
     Dates: start: 20040416, end: 20060307
  6. MYSLEE [Suspect]
     Indication: INSOMNIA
     Dosage: 20 TO 30 MG DAILY
     Route: 048
     Dates: start: 20041215, end: 20060307

REACTIONS (4)
  - ASPIRATION [None]
  - DEPRESSED LEVEL OF CONSCIOUSNESS [None]
  - GASTRIC MUCOSAL LESION [None]
  - INTENTIONAL OVERDOSE [None]
